FAERS Safety Report 9711995 (Version 1)
Quarter: 2013Q4

REPORT INFORMATION
  Report Type: Spontaneous
  Country: US (occurrence: None)
  Receive Date: 20131125
  Receipt Date: 20131125
  Transmission Date: 20140711
  Serious: No
  Sender: FDA-Public Use
  Company Number: None

PATIENT
  Age: 20 Year
  Sex: Female
  Weight: 49.9 kg

DRUGS (1)
  1. ORAJEL FOR COLD SORES SINGLE DOSE [Suspect]
     Indication: ORAL HERPES

REACTIONS (5)
  - Application site swelling [None]
  - Application site vesicles [None]
  - Application site pain [None]
  - Application site scab [None]
  - Application site exfoliation [None]
